FAERS Safety Report 8384272-7 (Version None)
Quarter: 2012Q2

REPORT INFORMATION
  Report Type: 
  Country: None (occurrence: None)
  Receive Date: 20120524
  Receipt Date: 20120521
  Transmission Date: 20120825
  Serious: Yes (Hospitalization)
  Sender: FDA-Public Use
  Company Number: US-BAYER-2012-001264

PATIENT
  Age: 45 Year
  Sex: Female
  Weight: 95 kg

DRUGS (15)
  1. METOPROLOL [Concomitant]
  2. OXYCODONE HCL [Concomitant]
  3. YAZ [Suspect]
     Indication: PREMENSTRUAL SYNDROME
  4. ZOLPIDEM [Concomitant]
  5. YAZ [Suspect]
     Indication: CONTRACEPTION
     Dosage: UNK
     Dates: start: 20081001, end: 20090101
  6. ASPIRIN [Concomitant]
  7. ALLERGY SHOTS [Concomitant]
     Dosage: UNK
     Dates: start: 20090122
  8. PHENERGAN [Concomitant]
  9. THYROID [Concomitant]
     Indication: THYROID DISORDER
     Dosage: UNK
     Dates: start: 19910101, end: 20110101
  10. YAZ [Suspect]
     Indication: MENOMETRORRHAGIA
  11. VITAMIN TAB [Concomitant]
     Dosage: DAILY
     Route: 048
  12. IBUPROFEN [Concomitant]
     Indication: PREMENSTRUAL SYNDROME
     Dosage: UNK UNK, PRN
  13. IBUPROFEN [Concomitant]
     Indication: HEADACHE
  14. ENOXAPARIN [Concomitant]
  15. POTASSIUM CHLORIDE [Concomitant]

REACTIONS (8)
  - EMOTIONAL DISTRESS [None]
  - PAIN [None]
  - INJURY [None]
  - FEAR OF DEATH [None]
  - DEEP VEIN THROMBOSIS [None]
  - PULMONARY EMBOLISM [None]
  - DEPRESSION [None]
  - NERVOUSNESS [None]
